FAERS Safety Report 9551967 (Version 1)
Quarter: 2013Q2

REPORT INFORMATION
  Report Type: Spontaneous
  Country: US (occurrence: None)
  Receive Date: 20130627
  Receipt Date: 20130627
  Transmission Date: 20140414
  Serious: No
  Sender: FDA-Public Use
  Company Number: 1000045590

PATIENT
  Age: 74 Year
  Sex: Male

DRUGS (9)
  1. LINZESS (LINACLOTIDE) (290 MICROGRAM, CAPSULES) [Suspect]
     Indication: CONSTIPATION
     Route: 048
     Dates: start: 20130522, end: 20130522
  2. LINZESS (LINACLOTIDE) (145 MICROGRAM, CAPSULES) [Suspect]
     Indication: CONSTIPATION
     Route: 048
     Dates: start: 20130526
  3. PRIMIDONE (PRIMIDONE) [Concomitant]
  4. FINASTERIDE (FINASTERIDE) [Concomitant]
  5. DIGOXIN (DIGOXIN) [Concomitant]
  6. ACIPHEX (RABEPRAZOLE SODIUM) (RABEPRAZOLE SODIUM) [Concomitant]
  7. ZOFRAN (ONDANSETRON) (ONDANSETRON) [Concomitant]
  8. LORTAB (HYDROCODONE/ACETOMINAPHEN) (HYDROCODONE/ACETOMINAPHEN) [Concomitant]
  9. ATENOLOL (ATENOLOL) [Concomitant]

REACTIONS (1)
  - Diarrhoea [None]
